FAERS Safety Report 16015896 (Version 2)
Quarter: 2019Q1

REPORT INFORMATION
  Report Type: Spontaneous
  Country: PT (occurrence: PT)
  Receive Date: 20190228
  Receipt Date: 20190311
  Transmission Date: 20190418
  Serious: Yes (Hospitalization, Other)
  Sender: FDA-Public Use
  Company Number: PT-LUPIN PHARMACEUTICALS INC.-2019-01132

PATIENT
  Age: 60 Year
  Sex: Male

DRUGS (1)
  1. ESCITALOPRAM OXALATE. [Suspect]
     Active Substance: ESCITALOPRAM OXALATE
     Indication: MAJOR DEPRESSION
     Dosage: UNK, LESS THAN 12 MONTHS
     Route: 065
     Dates: start: 2017, end: 2017

REACTIONS (2)
  - Drug withdrawal syndrome [Unknown]
  - Mania [Unknown]

NARRATIVE: CASE EVENT DATE: 2017
